FAERS Safety Report 8104448-3 (Version None)
Quarter: 2012Q1

REPORT INFORMATION
  Report Type: 
  Country: None (occurrence: None)
  Receive Date: 20120201
  Receipt Date: 20120125
  Transmission Date: 20120608
  Serious: Yes (Other)
  Sender: FDA-Public Use
  Company Number: PHHY2011GB84797

PATIENT
  Age: 20 Year
  Sex: Male

DRUGS (2)
  1. QUINIDINE HCL [Concomitant]
  2. FLUOXETINE [Suspect]
     Indication: MYASTHENIC SYNDROME
     Dosage: UNK

REACTIONS (1)
  - RESPIRATORY DISORDER [None]
